FAERS Safety Report 4393214-0 (Version None)
Quarter: 2004Q3

REPORT INFORMATION
  Report Type: 
  Country: None (occurrence: None)
  Receive Date: 20040701
  Receipt Date: 20040506
  Transmission Date: 20050211
  Serious: Yes (Other)
  Sender: FDA-Public Use
  Company Number: JP-JNJFOC-20040300471

PATIENT
  Age: 63 Year
  Sex: Male

DRUGS (6)
  1. REMICADE [Suspect]
     Indication: RHEUMATOID ARTHRITIS
     Dosage: 198 MG, INTRAVENOUS
     Route: 042
     Dates: start: 20031020
  2. REMICADE [Suspect]
     Indication: RHEUMATOID ARTHRITIS
     Dosage: 198 MG, INTRAVENOUS
     Route: 042
     Dates: start: 20031105
  3. REMICADE [Suspect]
     Indication: RHEUMATOID ARTHRITIS
     Dosage: 198 MG, INTRAVENOUS
     Route: 042
     Dates: start: 20031203
  4. REMICADE [Suspect]
     Indication: RHEUMATOID ARTHRITIS
     Dosage: 198 MG, INTRAVENOUS
     Route: 042
     Dates: start: 20040128
  5. REMICADE [Suspect]
     Indication: RHEUMATOID ARTHRITIS
     Dosage: 198 MG, INTRAVENOUS
     Route: 042
     Dates: start: 20040407
  6. METHOTREXATE [Concomitant]

REACTIONS (1)
  - OESOPHAGEAL CANDIDIASIS [None]
